FAERS Safety Report 15815047 (Version 1)
Quarter: 2019Q1

REPORT INFORMATION
  Report Type: Spontaneous
  Country: SE (occurrence: SE)
  Receive Date: 20190112
  Receipt Date: 20190112
  Transmission Date: 20190417
  Serious: Yes (Hospitalization)
  Sender: FDA-Public Use
  Company Number: SE-TEVA-2019-SE-997858

PATIENT
  Age: 76 Year
  Sex: Female

DRUGS (2)
  1. OXASCAND [Concomitant]
     Active Substance: OXAZEPAM
     Dosage: 30 MILLIGRAM DAILY;
     Route: 065
     Dates: start: 20180509
  2. MIRTAZAPINE. [Suspect]
     Active Substance: MIRTAZAPINE
     Indication: DEPRESSION
     Route: 065
     Dates: start: 20180509, end: 20180511

REACTIONS (1)
  - Swelling face [Recovering/Resolving]

NARRATIVE: CASE EVENT DATE: 20180511
